FAERS Safety Report 9869626 (Version 2)
Quarter: 2014Q1

REPORT INFORMATION
  Report Type: Spontaneous
  Country: US (occurrence: US)
  Receive Date: 20140205
  Receipt Date: 20140207
  Transmission Date: 20141002
  Serious: Yes (Death, Hospitalization, Other)
  Sender: FDA-Public Use
  Company Number: US-MERCK-1401USA012549

PATIENT
  Age: 73 Year
  Sex: Female

DRUGS (2)
  1. TEMODAR [Suspect]
     Indication: LUNG NEOPLASM MALIGNANT
     Dosage: 1 CAPSULE BY MOUTH, DAILY
     Route: 048
     Dates: start: 201401
  2. TEMODAR [Suspect]
     Indication: LUNG NEOPLASM MALIGNANT
     Dosage: 2 CAPSULES BY MOUTH, DAILY
     Route: 048
     Dates: start: 201401

REACTIONS (1)
  - Lung neoplasm malignant [Fatal]
